APPROVED DRUG PRODUCT: DEXAMETHASONE
Active Ingredient: DEXAMETHASONE
Strength: 0.5MG/5ML
Dosage Form/Route: ELIXIR;ORAL
Application: A088254 | Product #001
Applicant: PHARMOBEDIENT CONSULTING
Approved: Jul 27, 1983 | RLD: Yes | RS: No | Type: DISCN